FAERS Safety Report 9485504 (Version 5)
Quarter: 2015Q4

REPORT INFORMATION
  Report Type: Report from Study
  Country: US (occurrence: US)
  Receive Date: 20130829
  Receipt Date: 20151022
  Transmission Date: 20160305
  Serious: Yes (Other)
  Sender: FDA-Public Use
  Company Number: US-BIOGENIDEC-2013BI078373

PATIENT
  Age: 62 Year
  Sex: Female
  Weight: 84 kg

DRUGS (23)
  1. TECFIDERA [Suspect]
     Active Substance: DIMETHYL FUMARATE
     Indication: MULTIPLE SCLEROSIS
     Route: 048
     Dates: start: 20130625, end: 20130705
  2. SYMBICORT [Concomitant]
     Active Substance: BUDESONIDE\FORMOTEROL FUMARATE DIHYDRATE
  3. METOPROLOL SUCCINATE ER [Concomitant]
     Active Substance: METOPROLOL SUCCINATE
  4. TECFIDERA [Suspect]
     Active Substance: DIMETHYL FUMARATE
     Indication: MULTIPLE SCLEROSIS
     Route: 048
     Dates: start: 20130617, end: 20130624
  5. DIAZEPAM. [Concomitant]
     Active Substance: DIAZEPAM
  6. AVONEX [Concomitant]
     Active Substance: INTERFERON BETA-1A
  7. NITROSTAT [Concomitant]
     Active Substance: NITROGLYCERIN
     Route: 060
  8. ALPHAGAN P [Concomitant]
     Active Substance: BRIMONIDINE TARTRATE
  9. CLONODINE [Concomitant]
  10. AMLODIPINE [Concomitant]
     Active Substance: AMLODIPINE BESYLATE
  11. COLESTID [Concomitant]
     Active Substance: COLESTIPOL HYDROCHLORIDE
  12. LUMIGAN [Concomitant]
     Active Substance: BIMATOPROST
  13. AMITRIPTYLINE [Concomitant]
     Active Substance: AMITRIPTYLINE
  14. AMANTADINE [Concomitant]
     Active Substance: AMANTADINE
  15. MULTIVITAMIN [Concomitant]
     Active Substance: VITAMINS
     Route: 048
  16. CALCIUM CARBONATE. [Concomitant]
     Active Substance: CALCIUM CARBONATE
     Route: 048
  17. CLONAZEPAM. [Concomitant]
     Active Substance: CLONAZEPAM
  18. TIZANIDINE. [Concomitant]
     Active Substance: TIZANIDINE
  19. SERTRALINE [Concomitant]
     Active Substance: SERTRALINE HYDROCHLORIDE
  20. LOSARTAN. [Concomitant]
     Active Substance: LOSARTAN
  21. PERCOCET [Concomitant]
     Active Substance: ACETAMINOPHEN\OXYCODONE HYDROCHLORIDE
  22. DUO-NEB [Concomitant]
  23. PROVENTIL [Concomitant]
     Active Substance: ALBUTEROL

REACTIONS (4)
  - Dehydration [Recovered/Resolved]
  - Urinary hesitation [Recovered/Resolved]
  - Acute kidney injury [Recovered/Resolved]
  - Nausea [Recovered/Resolved]

NARRATIVE: CASE EVENT DATE: 2013
